FAERS Safety Report 14854191 (Version 1)
Quarter: 2018Q2

REPORT INFORMATION
  Report Type: Spontaneous
  Country: US (occurrence: US)
  Receive Date: 20180420
  Receipt Date: 20180420
  Transmission Date: 20180711
  Serious: Yes (Death)
  Sender: FDA-Public Use
  Company Number: None

PATIENT
  Age: 58 Year
  Sex: Male

DRUGS (1)
  1. IMATINIB [Suspect]
     Active Substance: IMATINIB
     Indication: HODGKIN^S DISEASE NODULAR SCLEROSIS
     Route: 048
     Dates: start: 20170815, end: 20180401

REACTIONS (1)
  - Death [None]

NARRATIVE: CASE EVENT DATE: 20180401
